FAERS Safety Report 5402423-0 (Version None)
Quarter: 2007Q3

REPORT INFORMATION
  Report Type: 
  Country: None (occurrence: None)
  Receive Date: 20070730
  Receipt Date: 20070716
  Transmission Date: 20080115
  Serious: Yes (Hospitalization)
  Sender: FDA-Public Use
  Company Number: US020671

PATIENT
  Age: 38 Year
  Sex: Female
  Weight: 54.8852 kg

DRUGS (2)
  1. PROVIGIL [Suspect]
     Indication: NARCOLEPSY
     Dosage: 200 MG BID ORAL
     Route: 048
     Dates: start: 20050901, end: 20060201
  2. PROVIGIL [Suspect]
     Indication: NARCOLEPSY
     Dosage: 200 MG IN AM AND 200MG/300 MG IN PM NA ORAL
     Route: 048
     Dates: start: 20061001, end: 20070710

REACTIONS (6)
  - BLOOD MAGNESIUM DECREASED [None]
  - BLOOD POTASSIUM DECREASED [None]
  - CONVULSION [None]
  - DRUG EFFECT DECREASED [None]
  - FEELING ABNORMAL [None]
  - SYNCOPE [None]
